FAERS Safety Report 24041229 (Version 2)
Quarter: 2024Q3

REPORT INFORMATION
  Report Type: Spontaneous
  Country: US (occurrence: US)
  Receive Date: 20240702
  Receipt Date: 20240809
  Transmission Date: 20241017
  Serious: Yes (Other)
  Sender: SAREPTA THERAPEUTICS
  Company Number: US-SAREPTA THERAPEUTICS INC.-SRP2024-004687

PATIENT
  Sex: Male

DRUGS (3)
  1. EXONDYS 51 [Suspect]
     Active Substance: ETEPLIRSEN
     Indication: Product used for unknown indication
     Dosage: 1500 MILLIGRAM, WEEKLY
     Route: 042
     Dates: end: 20240520
  2. EXONDYS 51 [Suspect]
     Active Substance: ETEPLIRSEN
     Dosage: 1200 MILLIGRAM, WEEKLY
     Route: 042
     Dates: end: 20240603
  3. EXONDYS 51 [Suspect]
     Active Substance: ETEPLIRSEN
     Dosage: 1200 MILLIGRAM, WEEKLY
     Route: 042
     Dates: end: 20240715

REACTIONS (4)
  - Renal failure [Unknown]
  - Cardiac failure [Unknown]
  - Cystatin C increased [Not Recovered/Not Resolved]
  - Quality of life decreased [Unknown]

NARRATIVE: CASE EVENT DATE: 20240101
